FAERS Safety Report 6381508-9 (Version None)
Quarter: 2009Q3

REPORT INFORMATION
  Report Type: 
  Country: None (occurrence: None)
  Receive Date: 20090924
  Receipt Date: 20090914
  Transmission Date: 20100115
  Serious: Yes (Death)
  Sender: FDA-Public Use
  Company Number: AE2009-190

PATIENT
  Age: 43 Year
  Sex: Female

DRUGS (6)
  1. METOPROLOL SUCCINATE [Suspect]
     Dosage: ORAL
     Route: 048
  2. HYDROCHLOROTHIAZIDE [Suspect]
     Dosage: ORAL
     Route: 048
  3. AMITRIPTYLINE HCL [Suspect]
     Dosage: ORAL
     Route: 048
  4. TRAMADOL HCL [Suspect]
     Dosage: ORAL
     Route: 048
  5. HYDROCORODONE/ACETAMINOPHEN [Suspect]
     Dosage: ORAL
     Route: 048
  6. METAXALONE [Suspect]
     Dosage: ORAL
     Route: 048

REACTIONS (3)
  - CARDIAC ARREST [None]
  - COMPLETED SUICIDE [None]
  - RESPIRATORY ARREST [None]
